FAERS Safety Report 20535277 (Version 3)
Quarter: 2022Q2

REPORT INFORMATION
  Report Type: Report from Study
  Country: TR (occurrence: TR)
  Receive Date: 20220302
  Receipt Date: 20220402
  Transmission Date: 20220721
  Serious: Yes (Other)
  Sender: FDA-Public Use
  Company Number: TR-ABBVIE-22K-161-4297315-00

PATIENT
  Age: 61 Year
  Sex: Male

DRUGS (2)
  1. CARBIDOPA\LEVODOPA [Suspect]
     Active Substance: CARBIDOPA\LEVODOPA
     Indication: Parkinson^s disease
     Dosage: MORNING DOSE (ML): 8.00 CONTINIOUS DOSE (ML): 4.00 EXTRA DOSE (ML): 1.50
     Route: 050
     Dates: start: 20220218, end: 20220221
  2. CARBIDOPA\LEVODOPA [Suspect]
     Active Substance: CARBIDOPA\LEVODOPA
     Dosage: MORNING DOSE (ML): 8.00 CONTINIOUS DOSE (ML): 4.00 EXTRA DOSE (ML): 1.50
     Route: 050
     Dates: start: 20220301

REACTIONS (4)
  - Embolism [Recovered/Resolved]
  - C-reactive protein increased [Recovered/Resolved]
  - Laboratory test abnormal [Recovered/Resolved]
  - Stoma site discharge [Recovering/Resolving]

NARRATIVE: CASE EVENT DATE: 20220224
